FAERS Safety Report 5910297-4 (Version None)
Quarter: 2008Q4

REPORT INFORMATION
  Report Type: 
  Country: None (occurrence: None)
  Receive Date: 20081007
  Receipt Date: 20080926
  Transmission Date: 20090506
  Serious: Yes (Death, Hospitalization)
  Sender: FDA-Public Use
  Company Number: PHHO2008US10196

PATIENT
  Sex: Male
  Weight: 82.7 kg

DRUGS (11)
  1. ERL 080A ERL+TAB [Suspect]
     Indication: RENAL TRANSPLANT
     Dosage: UNK
     Route: 048
     Dates: start: 20080327
  2. ERL 080A ERL+TAB [Suspect]
     Dosage: 1080 MG, BID
     Route: 048
     Dates: start: 20080803, end: 20080804
  3. ERL 080A ERL+TAB [Suspect]
     Dosage: 720 MG, BID
     Route: 048
     Dates: start: 20080805, end: 20080817
  4. NEORAL [Suspect]
     Indication: RENAL TRANSPLANT
     Dosage: 100 MG, BID
     Route: 048
     Dates: start: 20080306, end: 20080820
  5. PREDNISOLONE [Concomitant]
     Dosage: 2.5 MG  DALILY
     Route: 048
  6. DIOVAN [Concomitant]
     Dosage: 160 MG, BID
     Route: 048
  7. ATENOLOL [Concomitant]
     Dosage: 50 MG, BID
     Route: 048
  8. NIFEDIPINE [Concomitant]
     Dosage: 30 MG, BID
     Route: 048
  9. XANAX [Concomitant]
     Dosage: 0.25 MG, QHS
     Route: 048
  10. XANAX [Concomitant]
     Dosage: 0.5 MG, QHS
     Route: 048
  11. SODIUM BICARBONATE [Concomitant]

REACTIONS (15)
  - CHILLS [None]
  - CHRONIC ALLOGRAFT NEPHROPATHY [None]
  - COLITIS [None]
  - DIARRHOEA [None]
  - DIPLOPIA [None]
  - DYSARTHRIA [None]
  - FEELING JITTERY [None]
  - HEADACHE [None]
  - HYPOVOLAEMIA [None]
  - NYSTAGMUS [None]
  - PYREXIA [None]
  - RENAL IMPAIRMENT [None]
  - TREMOR [None]
  - VISION BLURRED [None]
  - WEST NILE VIRAL INFECTION [None]
